FAERS Safety Report 11892778 (Version 2)
Quarter: 2016Q1

REPORT INFORMATION
  Report Type: Spontaneous
  Country: US (occurrence: US)
  Receive Date: 20160106
  Receipt Date: 20160226
  Transmission Date: 20160526
  Serious: No
  Sender: FDA-Public Use
  Company Number: US-PFIZER INC-2015456850

PATIENT
  Sex: Female

DRUGS (1)
  1. LYRICA [Suspect]
     Active Substance: PREGABALIN
     Dosage: UNK

REACTIONS (5)
  - Pain [Unknown]
  - Malaise [Unknown]
  - Fibromyalgia [Unknown]
  - Drug withdrawal syndrome [Unknown]
  - Blood sodium decreased [Unknown]
